FAERS Safety Report 10749253 (Version 1)
Quarter: 2015Q1

REPORT INFORMATION
  Report Type: Spontaneous
  Country: US (occurrence: None)
  Receive Date: 20150120
  Receipt Date: 20150120
  Transmission Date: 20150721
  Serious: No
  Sender: FDA-Public Use
  Company Number: AEGR000773

PATIENT
  Age: 70 Year
  Sex: Male
  Weight: 93.4 kg

DRUGS (21)
  1. PLAVIX (CLOPIDOGREL BISULFATE) [Concomitant]
  2. TAMSULOSIN [Concomitant]
     Active Substance: TAMSULOSIN
  3. GLUCOPHAGE [Concomitant]
     Active Substance: METFORMIN HYDROCHLORIDE
  4. FISH OIL [Concomitant]
     Active Substance: FISH OIL
  5. SPIRIVA (TIOTROPIUM BROMIDE) [Concomitant]
  6. METFORMIN [Concomitant]
     Active Substance: METFORMIN HYDROCHLORIDE
  7. VITAMIN E (TOCOPHERYL ACID SUCCINATE) [Concomitant]
  8. JUXTAPID [Suspect]
     Active Substance: LOMITAPIDE MESYLATE
     Indication: HYPERLIPIDAEMIA
     Dates: start: 201311
  9. COREG [Concomitant]
     Active Substance: CARVEDILOL
  10. TRILIPIX [Concomitant]
     Active Substance: FENOFIBRIC ACID
  11. TEMAZEPAM. [Concomitant]
     Active Substance: TEMAZEPAM
  12. NORVASC (AMLODIPINE BESYLATE) [Concomitant]
  13. ANTIBIOTIC [Suspect]
     Active Substance: UNSPECIFIED INGREDIENT
     Indication: BRONCHITIS
  14. ALTACE [Concomitant]
     Active Substance: RAMIPRIL
  15. ASPIRIN (ACETYLSALICYLIC ACID) [Concomitant]
     Active Substance: ASPIRIN
  16. HCTZ (HYDROCHLOROTHIAZIDE) [Concomitant]
     Active Substance: HYDROCHLOROTHIAZIDE
  17. NIACIN (NICOTINIC ACID) [Concomitant]
  18. TESTOSTERONE. [Concomitant]
     Active Substance: TESTOSTERONE
  19. MIRAPEX [Concomitant]
     Active Substance: PRAMIPEXOLE DIHYDROCHLORIDE
  20. VITAMIN D (COLECALCIFEROL) [Concomitant]
  21. RAPAFLO [Concomitant]
     Active Substance: SILODOSIN

REACTIONS (8)
  - Decreased appetite [None]
  - Weight decreased [None]
  - Nausea [None]
  - Bronchitis [None]
  - Dysstasia [None]
  - Off label use [None]
  - Back pain [None]
  - Diarrhoea [None]

NARRATIVE: CASE EVENT DATE: 201311
